FAERS Safety Report 15800422 (Version 1)
Quarter: 2019Q1

REPORT INFORMATION
  Report Type: Spontaneous
  Country: US (occurrence: US)
  Receive Date: 20190108
  Receipt Date: 20190108
  Transmission Date: 20190417
  Serious: No
  Sender: FDA-Public Use
  Company Number: US-UPSHER-SMITH LABORATORIES, LLC-2018USL00546

PATIENT
  Age: 2 Year
  Sex: Female
  Weight: 15.42 kg

DRUGS (4)
  1. VIGADRONE [Suspect]
     Active Substance: VIGABATRIN
     Indication: SEIZURE
     Dosage: 750 MG, 2X/DAY
     Route: 048
     Dates: start: 201804, end: 201805
  2. ZONEGRAN [Concomitant]
     Active Substance: ZONISAMIDE
  3. VIGADRONE [Suspect]
     Active Substance: VIGABATRIN
     Dosage: 1000 MG, 2X/DAY
     Route: 048
     Dates: start: 201805, end: 20181024
  4. VIGADRONE [Suspect]
     Active Substance: VIGABATRIN
     Dosage: 1000 MG, 2X/DAY
     Route: 048
     Dates: start: 20181026

REACTIONS (3)
  - Seizure [Unknown]
  - Emotional disorder [Not Recovered/Not Resolved]
  - Insomnia [Recovering/Resolving]

NARRATIVE: CASE EVENT DATE: 201810
